FAERS Safety Report 5648830-2 (Version None)
Quarter: 2008Q1

REPORT INFORMATION
  Report Type: 
  Country: None (occurrence: None)
  Receive Date: 20080303
  Receipt Date: 20080303
  Transmission Date: 20080703
  Serious: Yes (Other)
  Sender: FDA-Public Use
  Company Number: None

PATIENT
  Age: 61 Year
  Sex: Female
  Weight: 61.2356 kg

DRUGS (2)
  1. ZICAM COLD REMEDY NASAL GEL DON'T KNOW ZICAM [Suspect]
     Indication: NASOPHARYNGITIS
     Dosage: SQUIRT IN EACH NOSTRIL EVERY FOUR HOURS NASAL
     Route: 045
  2. ZICAM COLD REMEDY NASAL GEL DON'T KNOW ZICAM [Suspect]
     Indication: PROPHYLAXIS
     Dosage: SQUIRT IN EACH NOSTRIL EVERY FOUR HOURS NASAL
     Route: 045

REACTIONS (1)
  - ANOSMIA [None]
